FAERS Safety Report 5451620-7 (Version None)
Quarter: 2007Q3

REPORT INFORMATION
  Report Type: 
  Country: None (occurrence: None)
  Receive Date: 20070913
  Receipt Date: 20070907
  Transmission Date: 20080115
  Serious: Yes (Hospitalization)
  Sender: FDA-Public Use
  Company Number: US-BOEHRINGER INGELHEIM PHARMACEUTICALS, INC.-2007-BP-19392BP

PATIENT
  Sex: Female
  Weight: 61 kg

DRUGS (5)
  1. MIRAPEX [Suspect]
     Indication: RESTLESS LEGS SYNDROME
     Route: 048
  2. EFFEXOR XR [Concomitant]
     Route: 048
     Dates: start: 20051121
  3. ATIVAN [Concomitant]
  4. MOTRIN [Concomitant]
     Route: 048
     Dates: start: 20051121
  5. XANAX [Concomitant]
     Route: 048
     Dates: start: 20061124

REACTIONS (18)
  - AKINESIA [None]
  - ANEURYSM [None]
  - ARTHRALGIA [None]
  - BLOOD URINE PRESENT [None]
  - COORDINATION ABNORMAL [None]
  - DRUG HYPERSENSITIVITY [None]
  - HEPATIC LESION [None]
  - HICCUPS [None]
  - HOFFMANN'S SIGN [None]
  - JOINT STIFFNESS [None]
  - LYMPHADENITIS [None]
  - MUSCULOSKELETAL DISCOMFORT [None]
  - MUSCULOSKELETAL STIFFNESS [None]
  - MYOCLONUS [None]
  - NEUROPATHY [None]
  - PROTEIN URINE [None]
  - THORACIC OUTLET SYNDROME [None]
  - TREMOR [None]
